FAERS Safety Report 12550586 (Version 3)
Quarter: 2017Q1

REPORT INFORMATION
  Report Type: Spontaneous
  Country: US (occurrence: US)
  Receive Date: 20160712
  Receipt Date: 20170322
  Transmission Date: 20170428
  Serious: No
  Sender: FDA-Public Use
  Company Number: US-PFIZER INC-2016333910

PATIENT
  Age: 61 Year
  Sex: Male
  Weight: 104 kg

DRUGS (6)
  1. METFORMIN [Concomitant]
     Active Substance: METFORMIN HYDROCHLORIDE
     Indication: DIABETES MELLITUS
     Dosage: 1000 MG, 2X/DAY
     Route: 048
     Dates: start: 2000
  2. GLIMEPIRIDE. [Concomitant]
     Active Substance: GLIMEPIRIDE
     Indication: DIABETES MELLITUS
     Dosage: 4 MG, 1X/DAY
     Route: 048
  3. ESCITALOPRAM [Concomitant]
     Active Substance: ESCITALOPRAM OXALATE
     Indication: DEPRESSION
     Dosage: 10 MG, DAILY
     Route: 048
     Dates: start: 201501
  4. LYRICA [Suspect]
     Active Substance: PREGABALIN
     Indication: NEUROPATHY PERIPHERAL
     Dosage: 200 MG, 3X/DAY
     Dates: start: 2008
  5. CLOPIDOGREL [Concomitant]
     Active Substance: CLOPIDOGREL BISULFATE
     Indication: CARDIOVASCULAR DISORDER
     Dates: start: 2011
  6. LISINOPRIL. [Concomitant]
     Active Substance: LISINOPRIL
     Indication: BLOOD PRESSURE ABNORMAL
     Dosage: 10 MG, 1X/DAY
     Route: 048
     Dates: start: 2000

REACTIONS (5)
  - Drug ineffective [Unknown]
  - Intentional overdose [Not Recovered/Not Resolved]
  - Neuropathy peripheral [Unknown]
  - Condition aggravated [Unknown]
  - Pain [Unknown]

NARRATIVE: CASE EVENT DATE: 2016
